FAERS Safety Report 17285594 (Version 10)
Quarter: 2020Q3

REPORT INFORMATION
  Report Type: Report from Study
  Country: IN (occurrence: IN)
  Receive Date: 20200117
  Receipt Date: 20200803
  Transmission Date: 20201102
  Serious: Yes (Death, Life-Threatening, Hospitalization)
  Sender: FDA-Public Use
  Company Number: NVSC2020IN006530

PATIENT
  Age: 72 Year
  Sex: Male
  Weight: 70.8 kg

DRUGS (21)
  1. BLINDED PEMETREXED [Suspect]
     Active Substance: PEMETREXED
     Indication: NON-SMALL CELL LUNG CANCER
     Dosage: 200 UG, Q3W
     Route: 042
     Dates: start: 20191209, end: 20200102
  2. PLACEBO [Suspect]
     Active Substance: UNSPECIFIED INGREDIENT
     Indication: NON-SMALL CELL LUNG CANCER
     Dosage: UNK
     Route: 058
     Dates: start: 20191209, end: 20200102
  3. FORACORT [Concomitant]
     Active Substance: BUDESONIDE\FORMOTEROL FUMARATE
     Indication: GENERAL PHYSICAL CONDITION
     Dosage: UNK
     Route: 065
     Dates: start: 20200215
  4. OSELTAMIVIR [Concomitant]
     Active Substance: OSELTAMIVIR
     Indication: PYREXIA
     Dosage: UNK
     Route: 065
     Dates: start: 20191230, end: 20191231
  5. BLINDED PEMBROLIZUMAB [Suspect]
     Active Substance: PEMBROLIZUMAB
     Indication: NON-SMALL CELL LUNG CANCER
     Dosage: 200 UG, Q3W
     Route: 042
     Dates: start: 20191209, end: 20200102
  6. DUOLIN [Concomitant]
     Indication: PYREXIA
     Dosage: UNK
     Route: 065
     Dates: start: 20191230, end: 20191231
  7. ROMIPLOSTIM [Concomitant]
     Active Substance: ROMIPLOSTIM
     Indication: PROPHYLAXIS
     Dosage: UNK
     Route: 065
     Dates: start: 20200214
  8. PIPERACILLIN AND TAZOBACTAM [Concomitant]
     Active Substance: PIPERACILLIN SODIUM\TAZOBACTAM SODIUM
     Indication: PYREXIA
     Dosage: UNK
     Route: 065
     Dates: start: 20191230, end: 20191231
  9. BLINDED CARBOPLATIN [Suspect]
     Active Substance: CARBOPLATIN
     Indication: NON-SMALL CELL LUNG CANCER
     Dosage: 200 UG, Q3W
     Route: 042
     Dates: start: 20191209, end: 20200102
  10. PLACEBO [Suspect]
     Active Substance: UNSPECIFIED INGREDIENT
     Indication: NON-SMALL CELL LUNG CANCER
     Dosage: 200 UG, Q3W
     Route: 042
     Dates: start: 20191209, end: 20200102
  11. OPTINEURON [Concomitant]
     Indication: VITAMIN B12 DEFICIENCY
     Dosage: UNK
     Route: 065
     Dates: start: 20200309
  12. AZITHROMYCIN ANHYDROUS. [Concomitant]
     Active Substance: AZITHROMYCIN ANHYDROUS
     Indication: PYREXIA
     Dosage: UNK
     Route: 065
     Dates: start: 20191230, end: 20191231
  13. BUDECORT [Concomitant]
     Active Substance: BUDESONIDE
     Indication: PYREXIA
     Dosage: UNK
     Route: 065
     Dates: start: 20191230, end: 20191231
  14. POTKLOR [Concomitant]
     Indication: HYPOKALAEMIA
     Dosage: UNK
     Route: 065
     Dates: start: 20200306
  15. IVABRADINE [Concomitant]
     Active Substance: IVABRADINE
     Indication: ANGINA PECTORIS
     Dosage: UNK
     Route: 065
     Dates: start: 20200304
  16. BLINDED ACZ885 [Suspect]
     Active Substance: CANAKINUMAB
     Indication: NON-SMALL CELL LUNG CANCER
     Dosage: 200 UG, Q3W
     Route: 042
     Dates: start: 20191209, end: 20200102
  17. BLINDED NO TREATMENT RECEIVED [Suspect]
     Active Substance: INVESTIGATIONAL PRODUCT
     Indication: NON-SMALL CELL LUNG CANCER
     Dosage: 200 UG, Q3W
     Route: 042
     Dates: start: 20191209, end: 20200102
  18. AMBROXOL [Concomitant]
     Active Substance: AMBROXOL
     Indication: PYREXIA
     Dosage: UNK
     Route: 065
     Dates: start: 20191230, end: 20191231
  19. COMPARATOR PEMETREXED [Suspect]
     Active Substance: PEMETREXED DISODIUM
     Indication: NON-SMALL CELL LUNG CANCER
     Dosage: 920 UG, Q3W
     Route: 042
     Dates: start: 20191209, end: 20200102
  20. COMPARATOR CARBOPLATIN [Suspect]
     Active Substance: CARBOPLATIN
     Indication: NON-SMALL CELL LUNG CANCER
     Dosage: 430 UG, Q3W
     Route: 042
     Dates: start: 20191209, end: 20200102
  21. MIRTAZAPINE. [Concomitant]
     Active Substance: MIRTAZAPINE
     Indication: PYREXIA
     Dosage: UNK
     Route: 065
     Dates: start: 20191231, end: 20191231

REACTIONS (2)
  - Nosocomial infection [Not Recovered/Not Resolved]
  - Febrile neutropenia [Fatal]

NARRATIVE: CASE EVENT DATE: 20200112
